FAERS Safety Report 8385174-2 (Version None)
Quarter: 2012Q2

REPORT INFORMATION
  Report Type: 
  Country: None (occurrence: None)
  Receive Date: 20120525
  Receipt Date: 20120521
  Transmission Date: 20120825
  Serious: Yes (Hospitalization)
  Sender: FDA-Public Use
  Company Number: US-PAR PHARMACEUTICAL, INC-2012SCPR004389

PATIENT

DRUGS (1)
  1. LEVETIRACETAM [Suspect]
     Indication: CONVULSION
     Dosage: UNK, UNKNOWN
     Route: 065

REACTIONS (5)
  - NEGATIVISM [None]
  - AGGRESSION [None]
  - PSYCHOMOTOR HYPERACTIVITY [None]
  - HYPERSEXUALITY [None]
  - CONDITION AGGRAVATED [None]
